FAERS Safety Report 21377907 (Version 1)
Quarter: 2022Q3

REPORT INFORMATION
  Report Type: Report from Study
  Country: US (occurrence: US)
  Receive Date: 20220926
  Receipt Date: 20220926
  Transmission Date: 20221027
  Serious: Yes (Life-Threatening, Hospitalization, Disabling, Other)
  Sender: FDA-Public Use
  Company Number: US-BRISTOL-MYERS SQUIBB COMPANY-2022-100210

PATIENT
  Age: 71 Year
  Sex: Male
  Weight: 89 kg

DRUGS (10)
  1. IDECABTAGENE VICLEUCEL [Suspect]
     Active Substance: IDECABTAGENE VICLEUCEL
     Indication: Plasma cell myeloma
     Dosage: 450^6 CAR+ T CELLS
     Route: 042
     Dates: start: 20220322, end: 20220322
  2. IBERDOMIDE [Suspect]
     Active Substance: IBERDOMIDE
     Indication: Plasma cell myeloma
     Dosage: LAST DOSE ADMINISTERED ON 08-JUN-2022
     Route: 048
     Dates: start: 20220519
  3. FLUDARABINE [Concomitant]
     Active Substance: FLUDARABINE PHOSPHATE
     Indication: Plasma cell myeloma
     Dosage: 30 MG/M2
     Route: 042
     Dates: start: 20220317, end: 20220319
  4. CYCLOPHOSPHAMIDE [Concomitant]
     Active Substance: CYCLOPHOSPHAMIDE
     Indication: Plasma cell myeloma
     Dosage: 300 MG/M2
     Route: 042
     Dates: start: 20220317, end: 20220319
  5. FLUCONAZOLE [Concomitant]
     Active Substance: FLUCONAZOLE
     Indication: Prophylaxis
     Route: 048
     Dates: start: 20220322
  6. GUAIFENESIN [Concomitant]
     Active Substance: GUAIFENESIN
     Indication: Rhinitis allergic
     Route: 048
     Dates: start: 20220404
  7. SULFAMETHOXAZOLE\TRIMETHOPRIM [Concomitant]
     Active Substance: SULFAMETHOXAZOLE\TRIMETHOPRIM
     Indication: Prophylaxis
     Dosage: 1 DF = 800-160 MG
     Route: 048
     Dates: start: 20220323
  8. ACYCLOVIR [Concomitant]
     Active Substance: ACYCLOVIR
     Indication: Prophylaxis
     Dosage: 400 MG
     Route: 048
     Dates: start: 20220321
  9. ASPIRIN [Concomitant]
     Active Substance: ASPIRIN
     Indication: Prophylaxis
     Dosage: 81 MG
     Route: 048
     Dates: start: 20220519, end: 20220608
  10. FLUTICASONE PROPIONATE (GLUCOCORTICOID) 50 MCG [Concomitant]
     Indication: Product used for unknown indication
     Dosage: 1 DF = 2 SPRAY
     Route: 045
     Dates: start: 20220404

REACTIONS (6)
  - Pseudomonas infection [Recovered/Resolved with Sequelae]
  - Cardiac failure congestive [Recovered/Resolved]
  - Sepsis [Recovered/Resolved]
  - Febrile neutropenia [Recovered/Resolved]
  - Hypotension [Recovered/Resolved]
  - Respiratory failure [Recovered/Resolved]

NARRATIVE: CASE EVENT DATE: 20220613
